FAERS Safety Report 5486629-0 (Version None)
Quarter: 2007Q4

REPORT INFORMATION
  Report Type: 
  Country: None (occurrence: None)
  Receive Date: 20071016
  Receipt Date: 20071004
  Transmission Date: 20080405
  Serious: Yes (Hospitalization)
  Sender: FDA-Public Use
  Company Number: EC-AMGEN-US247800

PATIENT
  Age: 72 Year
  Sex: Female
  Weight: 55 kg

DRUGS (6)
  1. ENBREL [Suspect]
     Indication: RHEUMATOID ARTHRITIS
     Route: 058
     Dates: start: 20051004, end: 20070101
  2. ENBREL [Suspect]
     Route: 058
     Dates: start: 20070101, end: 20070802
  3. VITAMIN D [Concomitant]
  4. CALCIUM [Concomitant]
     Dates: start: 20051001
  5. METHYLPREDNISOLONE [Concomitant]
     Indication: RHEUMATOID ARTHRITIS
     Dates: start: 20051001
  6. ALENDRONATE SODIUM [Concomitant]
     Indication: RHEUMATOID ARTHRITIS
     Dates: start: 20051001

REACTIONS (4)
  - ADENOCARCINOMA [None]
  - INAPPROPRIATE ANTIDIURETIC HORMONE SECRETION [None]
  - METASTASIS [None]
  - RHEUMATOID ARTHRITIS [None]
